FAERS Safety Report 18899777 (Version 1)
Quarter: 2021Q1

REPORT INFORMATION
  Report Type: Report from Study
  Country: US (occurrence: US)
  Receive Date: 20210216
  Receipt Date: 20210216
  Transmission Date: 20210420
  Serious: Yes (Other)
  Sender: FDA-Public Use
  Company Number: US-UCBSA-2021000493

PATIENT
  Sex: Male

DRUGS (1)
  1. CERTOLIZUMAB PEGOL [Suspect]
     Active Substance: CERTOLIZUMAB PEGOL
     Indication: ANKYLOSING SPONDYLITIS
     Dosage: 400 MILLIGRAM, EV 2 WEEKS(QOW)
     Dates: start: 20201216

REACTIONS (6)
  - Fatigue [Unknown]
  - Loss of consciousness [Not Recovered/Not Resolved]
  - Product use complaint [Unknown]
  - Ankylosing spondylitis [Not Recovered/Not Resolved]
  - Feeling abnormal [Unknown]
  - Gastrointestinal pain [Not Recovered/Not Resolved]
